FAERS Safety Report 7880070-9 (Version None)
Quarter: 2011Q4

REPORT INFORMATION
  Report Type: 
  Country: None (occurrence: None)
  Receive Date: 20111101
  Receipt Date: 20111021
  Transmission Date: 20120403
  Serious: Yes (Congenital Anomaly)
  Sender: FDA-Public Use
  Company Number: US-ROCHE-GNE319347

PATIENT
  Sex: Male

DRUGS (2)
  1. OMALIZUMAB [Suspect]
     Indication: ASTHMA
     Dosage: 150 MG, UNKNOWN
     Route: 064
     Dates: start: 20080601
  2. OMALIZUMAB [Suspect]
     Dosage: 150 MG, UNK
     Dates: start: 20110811

REACTIONS (2)
  - MATERNAL EXPOSURE DURING PREGNANCY [None]
  - HYDRONEPHROSIS [None]
